FAERS Safety Report 5033772-6 (Version None)
Quarter: 2006Q2

REPORT INFORMATION
  Report Type: 
  Country: None (occurrence: None)
  Receive Date: 20060623
  Receipt Date: 20060612
  Transmission Date: 20061013
  Serious: Yes (Other)
  Sender: FDA-Public Use
  Company Number: NL-NOVOPROD-254181

PATIENT
  Age: 55 Year
  Sex: Female
  Weight: 100 kg

DRUGS (2)
  1. LEVEMIR [Suspect]
     Indication: INSULIN-REQUIRING TYPE II DIABETES MELLITUS
     Dosage: 36 U, UNK
     Route: 058
     Dates: start: 20051024
  2. NOVORAPID PENFILL [Concomitant]
     Indication: INSULIN-REQUIRING TYPE II DIABETES MELLITUS
     Dosage: 62 U, QD

REACTIONS (1)
  - PALPITATIONS [None]
